FAERS Safety Report 12466578 (Version 1)
Quarter: 2016Q2

REPORT INFORMATION
  Report Type: Spontaneous
  Country: FR (occurrence: FR)
  Receive Date: 20160615
  Receipt Date: 20160615
  Transmission Date: 20160815
  Serious: Yes (Hospitalization)
  Sender: FDA-Public Use
  Company Number: FR-ASTRAZENECA-2016SE61589

PATIENT
  Age: 812 Month
  Sex: Male

DRUGS (6)
  1. OLMETEC [Concomitant]
     Active Substance: OLMESARTAN MEDOXOMIL
  2. XARELTO [Concomitant]
     Active Substance: RIVAROXABAN
  3. FLECAINE [Concomitant]
     Active Substance: FLECAINIDE
  4. AMLODIPINE [Concomitant]
     Active Substance: AMLODIPINE BESYLATE
  5. MOPRAL [Suspect]
     Active Substance: OMEPRAZOLE SODIUM
     Indication: GASTROOESOPHAGEAL REFLUX DISEASE
     Route: 048
     Dates: end: 20150520
  6. ZYLORIC [Concomitant]
     Active Substance: ALLOPURINOL

REACTIONS (8)
  - Decreased appetite [Unknown]
  - Hypocalcaemia [Recovered/Resolved]
  - Dehydration [Unknown]
  - Vomiting [Unknown]
  - Hypomagnesaemia [Recovered/Resolved]
  - Diarrhoea [Unknown]
  - Hypokalaemia [Recovered/Resolved]
  - Asthenia [Recovered/Resolved]

NARRATIVE: CASE EVENT DATE: 201505
